FAERS Safety Report 5042742-3 (Version None)
Quarter: 2006Q3

REPORT INFORMATION
  Report Type: 
  Country: None (occurrence: None)
  Receive Date: 20060705
  Receipt Date: 20060620
  Transmission Date: 20061208
  Serious: Yes (Hospitalization, Disabling, Other)
  Sender: FDA-Public Use
  Company Number: US-MERCK-0606USA03750

PATIENT
  Sex: Female

DRUGS (2)
  1. COZAAR [Suspect]
     Indication: HYPERTENSION
     Route: 048
     Dates: end: 20060101
  2. IBUPROFEN [Concomitant]
     Route: 065

REACTIONS (4)
  - NEPHRITIS INTERSTITIAL [None]
  - RENAL DISORDER [None]
  - RENAL FAILURE [None]
  - RENAL TUBULAR NECROSIS [None]
